FAERS Safety Report 12147778 (Version 1)
Quarter: 2016Q1

REPORT INFORMATION
  Report Type: Spontaneous
  Country: BR (occurrence: BR)
  Receive Date: 20160304
  Receipt Date: 20160304
  Transmission Date: 20160526
  Serious: Yes (Death)
  Sender: FDA-Public Use
  Company Number: BR-PFIZER INC-2016138164

PATIENT
  Sex: Female

DRUGS (1)
  1. DEPO-PROVERA [Suspect]
     Active Substance: MEDROXYPROGESTERONE ACETATE
     Indication: CONTRACEPTION
     Dosage: UNK, EVERY 3 MONTHS
     Route: 064
     Dates: start: 20130716, end: 20141017

REACTIONS (5)
  - Maternal exposure during pregnancy [Unknown]
  - Congenital hydrocephalus [Fatal]
  - Cleft lip [Fatal]
  - Premature baby [Unknown]
  - Arrhythmia [Fatal]
